FAERS Safety Report 4628191-8 (Version None)
Quarter: 2005Q2

REPORT INFORMATION
  Report Type: 
  Country: None (occurrence: None)
  Receive Date: 20050406
  Receipt Date: 20050316
  Transmission Date: 20051028
  Serious: Yes (Hospitalization)
  Sender: FDA-Public Use
  Company Number: FR-SANOFI-SYNTHELABO-F01200500421

PATIENT
  Sex: Male
  Weight: 59.5 kg

DRUGS (10)
  1. OXALIPLATIN [Suspect]
     Indication: OESOPHAGEAL CARCINOMA
     Route: 042
     Dates: start: 20050307, end: 20050307
  2. FLUOROURACIL [Suspect]
     Route: 042
     Dates: start: 20050307, end: 20050308
  3. LEUCOVORIN CALCIUM [Suspect]
     Route: 042
     Dates: start: 20050307, end: 20050308
  4. MOUTHWASH [Concomitant]
  5. MOTILIUM [Concomitant]
     Dosage: 2 UNIT
     Route: 048
  6. RISODAN [Concomitant]
     Dosage: 20 MG
     Route: 048
  7. MOLSIDOMINE [Concomitant]
     Dosage: 4 MG
     Route: 048
  8. ZESTRIL [Concomitant]
     Dosage: 1 UNIT
     Route: 048
  9. ATENOLOL [Concomitant]
     Dosage: 1 UNIT
     Route: 048
  10. ZOCOR [Concomitant]
     Dosage: 1 UNIT
     Route: 048

REACTIONS (5)
  - DYSPHAGIA [None]
  - GENERAL PHYSICAL HEALTH DETERIORATION [None]
  - MALNUTRITION [None]
  - PARAESTHESIA [None]
  - WEIGHT DECREASED [None]
